FAERS Safety Report 18474575 (Version 3)
Quarter: 2021Q2

REPORT INFORMATION
  Report Type: Spontaneous
  Country: US (occurrence: US)
  Receive Date: 20201106
  Receipt Date: 20210512
  Transmission Date: 20210717
  Serious: No
  Sender: FDA-Public Use
  Company Number: US-TAKEDA-2020TUS047744

PATIENT
  Sex: Female
  Weight: 48 kg

DRUGS (1)
  1. ALUNBRIG [Suspect]
     Active Substance: BRIGATINIB
     Indication: LUNG NEOPLASM MALIGNANT
     Dosage: 180 MILLIGRAM, QD
     Route: 065

REACTIONS (7)
  - Rash [Not Recovered/Not Resolved]
  - Pruritus [Not Recovered/Not Resolved]
  - Adverse event [Not Recovered/Not Resolved]
  - Swelling of eyelid [Unknown]
  - Skin exfoliation [Not Recovered/Not Resolved]
  - Eyelids pruritus [Unknown]
  - Dry skin [Not Recovered/Not Resolved]
